FAERS Safety Report 16563575 (Version 2)
Quarter: 2019Q3

REPORT INFORMATION
  Report Type: Report from Study
  Country: US (occurrence: US)
  Receive Date: 20190712
  Receipt Date: 20190904
  Transmission Date: 20191004
  Serious: No
  Sender: FDA-Public Use
  Company Number: US-ALEXION PHARMACEUTICALS INC.-A201910273

PATIENT
  Sex: Female

DRUGS (1)
  1. SOLIRIS [Suspect]
     Active Substance: ECULIZUMAB
     Indication: MYASTHENIA GRAVIS
     Dosage: UNK
     Route: 065

REACTIONS (11)
  - White blood cell disorder [Unknown]
  - Tinnitus [Unknown]
  - Eyelid ptosis [Unknown]
  - Visual impairment [Unknown]
  - Vertigo [Unknown]
  - Myalgia [Unknown]
  - Sensation of foreign body [Unknown]
  - Hypermetropia [Unknown]
  - Musculoskeletal stiffness [Unknown]
  - Vision blurred [Unknown]
  - Malaise [Unknown]
